FAERS Safety Report 19554025 (Version 1)
Quarter: 2021Q3

REPORT INFORMATION
  Report Type: Spontaneous
  Country: AT (occurrence: AT)
  Receive Date: 20210715
  Receipt Date: 20210715
  Transmission Date: 20211014
  Serious: Yes (Other)
  Sender: FDA-Public Use
  Company Number: AT-ASTRAZENECA-2021A601990

PATIENT
  Age: 69 Year
  Sex: Female

DRUGS (19)
  1. QUILONORM [Suspect]
     Active Substance: LITHIUM
     Dosage: 225.0MG UNKNOWN
     Route: 065
     Dates: start: 20210412, end: 20210414
  2. ZYPREXA [Suspect]
     Active Substance: OLANZAPINE
     Dosage: 7.5MG UNKNOWN
     Route: 065
     Dates: start: 20210514, end: 20210526
  3. QUILONORM [Suspect]
     Active Substance: LITHIUM
     Dosage: 225.0MG UNKNOWN
     Route: 065
     Dates: start: 20210412, end: 20210414
  4. ZOLDEM [Concomitant]
     Active Substance: ZOLPIDEM TARTRATE
     Dosage: 10.0MG UNKNOWN
     Route: 065
     Dates: start: 20210401, end: 20210504
  5. ZOLDEM [Concomitant]
     Active Substance: ZOLPIDEM TARTRATE
     Dosage: 10.0MG UNKNOWN
     Route: 065
     Dates: start: 20210507, end: 20210526
  6. SERTRALINE [Suspect]
     Active Substance: SERTRALINE HYDROCHLORIDE
     Dosage: 150.0MG UNKNOWN
     Route: 065
     Dates: start: 20210513, end: 20210526
  7. TRITTICO [Suspect]
     Active Substance: TRAZODONE HYDROCHLORIDE
     Dosage: 100.0MG UNKNOWN
     Route: 065
     Dates: start: 20210428, end: 20210526
  8. TRITTICO [Suspect]
     Active Substance: TRAZODONE HYDROCHLORIDE
     Dosage: 100.0MG UNKNOWN
     Route: 065
     Dates: start: 20210401, end: 20210427
  9. SEROQUEL XR [Suspect]
     Active Substance: QUETIAPINE FUMARATE
     Dosage: 150.0MG UNKNOWN
     Route: 048
     Dates: start: 20210405, end: 20210415
  10. SERTRALINE [Suspect]
     Active Substance: SERTRALINE HYDROCHLORIDE
     Dosage: 150.0MG UNKNOWN
     Route: 065
     Dates: start: 20210401, end: 20210401
  11. SEROQUEL XR [Suspect]
     Active Substance: QUETIAPINE FUMARATE
     Dosage: 150.0MG UNKNOWN
     Route: 048
     Dates: start: 20210416, end: 20210422
  12. SEROQUEL XR [Suspect]
     Active Substance: QUETIAPINE FUMARATE
     Dosage: 50.0MG UNKNOWN
     Route: 048
     Dates: start: 20210423, end: 20210510
  13. ZYPREXA [Suspect]
     Active Substance: OLANZAPINE
     Dosage: 10.0MG UNKNOWN
     Route: 065
     Dates: start: 20210401, end: 20210513
  14. SERTRALINE [Suspect]
     Active Substance: SERTRALINE HYDROCHLORIDE
     Dosage: 150.0MG UNKNOWN
     Route: 065
     Dates: start: 20210402, end: 20210412
  15. SPRAVATO [Suspect]
     Active Substance: ESKETAMINE
     Indication: MAJOR DEPRESSION
     Dosage: UNKNOWN
     Route: 045
  16. QUILONORM [Suspect]
     Active Substance: LITHIUM
     Dosage: 225.0MG UNKNOWN
     Route: 065
     Dates: start: 20210405, end: 20210407
  17. PREGABALIN. [Suspect]
     Active Substance: PREGABALIN
     Dosage: UNKNOWN
     Route: 065
     Dates: end: 20210503
  18. SEROQUEL XR [Suspect]
     Active Substance: QUETIAPINE FUMARATE
     Dosage: 50.0MG UNKNOWN
     Route: 048
     Dates: start: 20210514, end: 20210526
  19. SERTRALINE [Suspect]
     Active Substance: SERTRALINE HYDROCHLORIDE
     Dosage: 150.0MG UNKNOWN
     Route: 065
     Dates: start: 20210402, end: 20210412

REACTIONS (1)
  - Oedema [Recovered/Resolved]

NARRATIVE: CASE EVENT DATE: 20210422
